FAERS Safety Report 9834463 (Version 2)
Quarter: 2014Q1

REPORT INFORMATION
  Report Type: Spontaneous
  Country: DE (occurrence: DE)
  Receive Date: 20140122
  Receipt Date: 20140122
  Transmission Date: 20141002
  Serious: Yes (Hospitalization, Other)
  Sender: FDA-Public Use
  Company Number: DE-THROMBOGENICS NV-JET-2014-003

PATIENT
  Age: 61 Year
  Sex: Female

DRUGS (2)
  1. JETREA [Suspect]
     Indication: MACULAR HOLE
     Dosage: 0.125 MG, ONE TIME DOSE
     Route: 031
     Dates: start: 20130724, end: 20130724
  2. JETREA [Suspect]
     Indication: VITREOUS ADHESIONS

REACTIONS (6)
  - Macular hole [Recovered/Resolved]
  - Disease progression [Recovered/Resolved]
  - Visual acuity reduced [Recovering/Resolving]
  - General physical health deterioration [Recovered/Resolved]
  - Photopsia [Unknown]
  - Vision blurred [Unknown]
